FAERS Safety Report 21422518 (Version 1)
Quarter: 2022Q4

REPORT INFORMATION
  Report Type: Spontaneous
  Country: DE (occurrence: DE)
  Receive Date: 20221007
  Receipt Date: 20221007
  Transmission Date: 20230112
  Serious: Yes (Hospitalization)
  Sender: FDA-Public Use
  Company Number: DE-ADRED-08381-02

PATIENT
  Age: 66 Year
  Sex: Female
  Weight: 42 kg

DRUGS (7)
  1. ASPIRIN [Suspect]
     Active Substance: ASPIRIN
     Dosage: 100 MG, 1-0-0-0
  2. CLOPIDOGREL BISULFATE [Suspect]
     Active Substance: CLOPIDOGREL BISULFATE
     Dosage: 75 MG, QD(0-1-0-0)
  3. PANTOPRAZOLE [Concomitant]
     Active Substance: PANTOPRAZOLE
     Dosage: 40 MG, 1-0-1-0
  4. IRON (II) MALATE [Concomitant]
     Dosage: UNK
     Route: 042
  5. LEVOTHYROXINE SODIUM [Concomitant]
     Active Substance: LEVOTHYROXINE SODIUM
     Dosage: 125 ?G, 0.5-0-0-0
  6. FOLIC ACID [Concomitant]
     Active Substance: FOLIC ACID
     Dosage: 0.4 MG(SCHEME)
  7. METAMIZOLE [Concomitant]
     Active Substance: METAMIZOLE
     Dosage: 500 MG(REQUIREMENT)

REACTIONS (10)
  - Haematochezia [Unknown]
  - Bradycardia [Unknown]
  - General physical health deterioration [Unknown]
  - Fatigue [Unknown]
  - Cachexia [Unknown]
  - Condition aggravated [Unknown]
  - Abdominal pain upper [Unknown]
  - Anaemia [Unknown]
  - Nausea [Unknown]
  - Gastrointestinal haemorrhage [Unknown]
